FAERS Safety Report 25513870 (Version 3)
Quarter: 2025Q3

REPORT INFORMATION
  Report Type: Spontaneous
  Country: US (occurrence: US)
  Receive Date: 20250703
  Receipt Date: 20250716
  Transmission Date: 20251021
  Serious: No
  Sender: SANOFI AVENTIS
  Company Number: US-SA-2025SA185790

PATIENT
  Age: 59 Year
  Sex: Female

DRUGS (2)
  1. DUPIXENT [Suspect]
     Active Substance: DUPILUMAB
     Indication: Dermatitis atopic
     Route: 058
  2. DUPIXENT [Suspect]
     Active Substance: DUPILUMAB
     Dosage: 300 MG, QOW
     Route: 058

REACTIONS (4)
  - Eczema [Unknown]
  - Incorrect dose administered [Unknown]
  - Accidental exposure to product [Unknown]
  - Exposure via skin contact [Unknown]
